FAERS Safety Report 7524388-8 (Version None)
Quarter: 2011Q2

REPORT INFORMATION
  Report Type: 
  Country: None (occurrence: None)
  Receive Date: 20110606
  Receipt Date: 20110525
  Transmission Date: 20111010
  Serious: Yes (Life-Threatening, Hospitalization, Other)
  Sender: FDA-Public Use
  Company Number: GB-AMGEN-GBRSP2011027775

PATIENT
  Age: 75 Year
  Sex: Female
  Weight: 89.4 kg

DRUGS (8)
  1. BISOPROLOL FUMARATE [Concomitant]
  2. FRUSEMIDE                          /00032601/ [Concomitant]
  3. DOXAZOSIN MESYLATE [Concomitant]
  4. ASPIRIN [Concomitant]
  5. LOSARTAN POTASSIUM [Concomitant]
  6. SIMVASTATIN [Concomitant]
  7. ENBREL [Suspect]
     Indication: RHEUMATOID ARTHRITIS
     Dosage: 50 MG, UNK
     Route: 058
     Dates: start: 20100212, end: 20110202
  8. ALENDRONATE SODIUM [Concomitant]

REACTIONS (7)
  - WEIGHT DECREASED [None]
  - BILE DUCT CANCER [None]
  - ABDOMINAL PAIN UPPER [None]
  - VOMITING [None]
  - MALAISE [None]
  - DECREASED APPETITE [None]
  - NAUSEA [None]
